FAERS Safety Report 4690411-1 (Version None)
Quarter: 2005Q2

REPORT INFORMATION
  Report Type: 
  Country: None (occurrence: None)
  Receive Date: 20050615
  Receipt Date: 20050602
  Transmission Date: 20051028
  Serious: Yes (Other)
  Sender: FDA-Public Use
  Company Number: NL-SANOFI-SYNTHELABO-F01200500884

PATIENT
  Sex: Male
  Weight: 89 kg

DRUGS (3)
  1. ALFUZOSIN [Suspect]
     Indication: BENIGN PROSTATIC HYPERPLASIA
     Route: 048
     Dates: start: 20041019
  2. ALFUZOSIN [Suspect]
     Route: 048
     Dates: start: 20041019
  3. ALFUZOSIN [Suspect]
     Route: 048
     Dates: start: 20041019

REACTIONS (1)
  - ANGINA PECTORIS [None]
